FAERS Safety Report 9548874 (Version 1)
Quarter: 2013Q2

REPORT INFORMATION
  Report Type: Spontaneous
  Country: US (occurrence: None)
  Receive Date: 20130606
  Receipt Date: 20130606
  Transmission Date: 20140414
  Serious: Yes (Other)
  Sender: FDA-Public Use
  Company Number: 2012BAX000083

PATIENT
  Sex: Male

DRUGS (1)
  1. FEIBA NF [Suspect]
     Indication: FACTOR VIII INHIBITION
     Route: 042
     Dates: start: 201201

REACTIONS (1)
  - Factor VIII inhibition [None]
